FAERS Safety Report 18554065 (Version 1)
Quarter: 2020Q4

REPORT INFORMATION
  Report Type: Spontaneous
  Country: AT (occurrence: AT)
  Receive Date: 20201127
  Receipt Date: 20201127
  Transmission Date: 20210114
  Serious: Yes (Other)
  Sender: FDA-Public Use
  Company Number: AT-HRAPH01-201800564

PATIENT
  Age: 50 Year
  Sex: Male
  Weight: 67 kg

DRUGS (40)
  1. LYSODREN [Suspect]
     Active Substance: MITOTANE
     Indication: ADJUVANT THERAPY
     Dosage: 01 TABLET: 1-0-0
     Dates: start: 20181206, end: 20181207
  2. LYSODREN [Suspect]
     Active Substance: MITOTANE
     Indication: ADJUVANT THERAPY
     Dosage: 02 TABLET: 1-1-0
     Dates: start: 20181208, end: 20181209
  3. LYSODREN [Suspect]
     Active Substance: MITOTANE
     Indication: ADJUVANT THERAPY
     Dosage: 06 TABLET: 2-1-3
     Dates: start: 20190107, end: 20200709
  4. HYDROCORTONE [Concomitant]
     Active Substance: HYDROCORTISONE
     Indication: PRODUCT USED FOR UNKNOWN INDICATION
     Dates: start: 20190605, end: 20191209
  5. HYDROCORTONE [Concomitant]
     Active Substance: HYDROCORTISONE
     Indication: PRODUCT USED FOR UNKNOWN INDICATION
     Dosage: 50 TO 40 MG DAILY ALTERNATING
     Dates: start: 202010, end: 202010
  6. LYSODREN [Suspect]
     Active Substance: MITOTANE
     Indication: ADJUVANT THERAPY
     Dosage: 06 TABLETS DAILY: 2-2-2
     Dates: start: 20180404, end: 20180807
  7. LYSODREN [Suspect]
     Active Substance: MITOTANE
     Indication: ADJUVANT THERAPY
     Dosage: 07 TABLETS DAILY: 2-2-3
     Dates: start: 20180808, end: 20181112
  8. LYSODREN [Suspect]
     Active Substance: MITOTANE
     Indication: ADJUVANT THERAPY
     Dosage: 03 TABLET: 1-1-1
     Dates: start: 20181210, end: 20181211
  9. LYSODREN [Suspect]
     Active Substance: MITOTANE
     Indication: ADJUVANT THERAPY
     Dosage: 04 TABLET: 2-1-1
     Dates: start: 20181212, end: 20181213
  10. LYSODREN [Suspect]
     Active Substance: MITOTANE
     Indication: ADJUVANT THERAPY
     Dosage: 06 TABLET: 2-2-3
     Dates: start: 20181218, end: 20190106
  11. HYDROCORTONE [Concomitant]
     Active Substance: HYDROCORTISONE
     Indication: PRODUCT USED FOR UNKNOWN INDICATION
     Dosage: 1-1.5-1
     Dates: start: 20180612, end: 20180807
  12. HYDROCORTONE [Concomitant]
     Active Substance: HYDROCORTISONE
     Indication: PRODUCT USED FOR UNKNOWN INDICATION
     Dates: start: 20200901, end: 202009
  13. HYDROCORTONE [Concomitant]
     Active Substance: HYDROCORTISONE
     Indication: PRODUCT USED FOR UNKNOWN INDICATION
     Dosage: 60 TO 50 MG DAILY ALTERNATING
     Dates: start: 202009, end: 20200930
  14. IRBEPRESS HCT [Concomitant]
     Active Substance: HYDROCHLOROTHIAZIDE\IRBESARTAN
     Indication: HYPERTENSION
     Dosage: 150/12.5
     Dates: start: 20180705, end: 20180808
  15. CARVEDILOL 1 A [Concomitant]
     Indication: HYPERTENSION
     Dosage: 0-0-1
     Dates: start: 20180516, end: 20180911
  16. PANTOLOC [Concomitant]
     Active Substance: PANTOPRAZOLE SODIUM
     Indication: GASTRIC DISORDER
     Dosage: 1-0-0
     Dates: end: 20180403
  17. PANTOPRAZOLE [Concomitant]
     Active Substance: PANTOPRAZOLE
     Indication: GASTRIC DISORDER
     Dosage: 0-0-1
     Dates: start: 20180404
  18. HYDROCORTONE [Concomitant]
     Active Substance: HYDROCORTISONE
     Indication: PRODUCT USED FOR UNKNOWN INDICATION
     Dosage: 1.5-1.5-0
     Dates: start: 20180808, end: 20181112
  19. HYDROCORTONE [Concomitant]
     Active Substance: HYDROCORTISONE
     Indication: PRODUCT USED FOR UNKNOWN INDICATION
     Dosage: 80 - 90 MG DAILY ALTERNATING
     Dates: start: 20190109, end: 20190213
  20. HYDROCORTONE [Concomitant]
     Active Substance: HYDROCORTISONE
     Indication: PRODUCT USED FOR UNKNOWN INDICATION
     Dates: start: 20190214, end: 20190604
  21. IRBEPRESS HCT [Concomitant]
     Active Substance: HYDROCHLOROTHIAZIDE\IRBESARTAN
     Indication: HYPERTENSION
     Dosage: 150/12.5 AT A HALF DOSE
     Dates: start: 20180911
  22. VITAMIN B [Concomitant]
     Active Substance: VITAMIN B
     Indication: VITAMIN SUPPLEMENTATION
     Dates: start: 20181017
  23. LYSODREN [Suspect]
     Active Substance: MITOTANE
     Indication: ADJUVANT THERAPY
     Dosage: 05 TABLETS DAILY (2.5 G): 1-2-2
     Dates: start: 20180401, end: 20180403
  24. LYSODREN [Suspect]
     Active Substance: MITOTANE
     Indication: ADJUVANT THERAPY
     Dosage: 05 TABLET: 2-2-1
     Dates: start: 20181214, end: 20181215
  25. OLEOVIT VITAMIN D [Concomitant]
     Indication: VITAMIN SUPPLEMENTATION
  26. LYSODREN [Suspect]
     Active Substance: MITOTANE
     Indication: ADJUVANT THERAPY
     Dates: start: 20180316, end: 20180327
  27. LYSODREN [Suspect]
     Active Substance: MITOTANE
     Indication: ADJUVANT THERAPY
     Dosage: 04 TABLETS DAILY (2 G): 1-1-2
     Dates: start: 20180328, end: 20180331
  28. LYSODREN [Suspect]
     Active Substance: MITOTANE
     Indication: ADJUVANT THERAPY
     Dosage: 06 TABLETS DAILY: 2-2-2
     Dates: start: 20181113, end: 20181127
  29. IRBEPRESS [Concomitant]
     Indication: HYPERTENSION
     Dosage: 1-0-0
     Dates: start: 20180516, end: 20180704
  30. HYDROCORTONE [Concomitant]
     Active Substance: HYDROCORTISONE
     Indication: PRODUCT USED FOR UNKNOWN INDICATION
     Dosage: 1-0.5-0
     Dates: start: 20180324, end: 20180611
  31. HYDROCORTONE [Concomitant]
     Active Substance: HYDROCORTISONE
     Indication: PRODUCT USED FOR UNKNOWN INDICATION
     Dosage: 70 TO 60 MG DAILY ALTERNATING
     Dates: start: 202008, end: 202008
  32. HYDROCORTONE [Concomitant]
     Active Substance: HYDROCORTISONE
     Indication: PRODUCT USED FOR UNKNOWN INDICATION
     Dates: start: 20200901, end: 202009
  33. LYSODREN [Suspect]
     Active Substance: MITOTANE
     Indication: ADJUVANT THERAPY
     Dosage: 06 TABLET: 2-2-2
     Dates: start: 20181216, end: 20181217
  34. ASCALAN [Concomitant]
     Active Substance: DOXAZOSIN MESYLATE
     Indication: HYPERTENSION
     Dosage: 1-1-0
     Dates: start: 20180516, end: 20180704
  35. HYDROCORTONE [Concomitant]
     Active Substance: HYDROCORTISONE
     Indication: PRODUCT USED FOR UNKNOWN INDICATION
     Dosage: 70 - 80 MG DAILY ALTERNATING
     Dates: start: 20181113, end: 20181127
  36. HYDROCORTONE [Concomitant]
     Active Substance: HYDROCORTISONE
     Indication: PRODUCT USED FOR UNKNOWN INDICATION
     Dates: start: 20191210, end: 202008
  37. IRBEPRESS [Concomitant]
     Indication: HYPERTENSION
     Dosage: 1-0-0
     Dates: start: 20180809, end: 20180911
  38. HYDROCORTONE [Concomitant]
     Active Substance: HYDROCORTISONE
     Indication: PRODUCT USED FOR UNKNOWN INDICATION
     Dates: start: 20181206, end: 20190108
  39. HYDROCORTONE [Concomitant]
     Active Substance: HYDROCORTISONE
     Indication: PRODUCT USED FOR UNKNOWN INDICATION
     Dates: start: 202010, end: 20201022
  40. L-CARNITIN [Concomitant]
     Indication: VITAMIN SUPPLEMENTATION

REACTIONS (17)
  - Fatigue [Recovering/Resolving]
  - Chills [Recovering/Resolving]
  - Hypogonadism [Not Recovered/Not Resolved]
  - Dyslipidaemia [Recovering/Resolving]
  - Off label use [Recovered/Resolved]
  - Mental impairment [Recovering/Resolving]
  - Blood count abnormal [Recovering/Resolving]
  - Peripheral coldness [Recovering/Resolving]
  - Dysgeusia [Recovering/Resolving]
  - Weight decreased [Recovered/Resolved]
  - Adrenal insufficiency [Recovering/Resolving]
  - Gastrointestinal disorder [Recovering/Resolving]
  - Feeling hot [Recovering/Resolving]
  - Muscular weakness [Recovering/Resolving]
  - Drug interaction [Unknown]
  - Blood pressure inadequately controlled [Recovering/Resolving]
  - Dizziness [Recovering/Resolving]

NARRATIVE: CASE EVENT DATE: 2018
